FAERS Safety Report 8097852-3 (Version None)
Quarter: 2012Q1

REPORT INFORMATION
  Report Type: 
  Country: None (occurrence: None)
  Receive Date: 20120126
  Receipt Date: 20120123
  Transmission Date: 20120608
  Serious: Yes (Hospitalization)
  Sender: FDA-Public Use
  Company Number: 2011SP012082

PATIENT
  Age: 30 Year
  Sex: Female
  Weight: 63.5036 kg

DRUGS (6)
  1. PROVENTIL [Concomitant]
  2. TRIAZOLAM [Concomitant]
  3. NUVARING [Suspect]
     Indication: CONTRACEPTION
     Dates: start: 20050701, end: 20100316
  4. MIDRIN [Concomitant]
  5. PERCOCET [Concomitant]
  6. LYRICA [Concomitant]

REACTIONS (15)
  - PAIN [None]
  - LARYNGITIS [None]
  - ARTHRALGIA [None]
  - BRONCHITIS [None]
  - AFFECTIVE DISORDER [None]
  - POLLAKIURIA [None]
  - DEEP VEIN THROMBOSIS [None]
  - PNEUMONIA [None]
  - DYSURIA [None]
  - HEAD INJURY [None]
  - MICTURITION URGENCY [None]
  - BIPOLAR DISORDER [None]
  - PANIC ATTACK [None]
  - ROAD TRAFFIC ACCIDENT [None]
  - FACE INJURY [None]
